FAERS Safety Report 16545277 (Version 1)
Quarter: 2019Q3

REPORT INFORMATION
  Report Type: Spontaneous
  Country: US (occurrence: US)
  Receive Date: 20190708
  Receipt Date: 20190708
  Transmission Date: 20191004
  Serious: No
  Sender: FDA-Public Use
  Company Number: None

PATIENT
  Age: 54 Year
  Sex: Female
  Weight: 58.5 kg

DRUGS (7)
  1. VITAMIN B COMPLEX [Concomitant]
     Active Substance: CYANOCOBALAMIN\DEXPANTHENOL\NIACINAMIDE\PYRIDOXINE HYDROCHLORIDE\RIBOFLAVIN 5^-PHOSPHATE SODIUM\THIAMINE HYDROCHLORIDE\VITAMIN B COMPLEX
  2. METAMUCIL [Concomitant]
     Active Substance: PLANTAGO SEED
  3. VITAMIN D WITH K-2 [Concomitant]
  4. MUSHROOM COMPLEX [Concomitant]
  5. AVASTIN [Suspect]
     Active Substance: BEVACIZUMAB
     Indication: FALLOPIAN TUBE CANCER
     Dates: start: 20190201
  6. MAGNESIUM [Concomitant]
     Active Substance: MAGNESIUM
  7. COLACE [Concomitant]
     Active Substance: DOCUSATE SODIUM

REACTIONS (8)
  - Neck pain [None]
  - Back pain [None]
  - Spinal pain [None]
  - Rhinorrhoea [None]
  - Sinus disorder [None]
  - Vision blurred [None]
  - Migraine [None]
  - Pain in extremity [None]

NARRATIVE: CASE EVENT DATE: 20190708
